FAERS Safety Report 5836624-4 (Version None)
Quarter: 2008Q3

REPORT INFORMATION
  Report Type: 
  Country: None (occurrence: None)
  Receive Date: 20080807
  Receipt Date: 20080728
  Transmission Date: 20090109
  Serious: Yes (Hospitalization)
  Sender: FDA-Public Use
  Company Number: GB-ELI_LILLY_AND_COMPANY-GB200807005912

PATIENT
  Age: 50 Year
  Sex: Female

DRUGS (2)
  1. GEMZAR [Suspect]
     Dosage: 1 D/F, DAILY (1/D)
     Dates: start: 20071015, end: 20071022
  2. NAVELBINE [Concomitant]
     Dosage: 1 D/F, DAILY (1/D)
     Route: 042
     Dates: start: 20071015, end: 20071022

REACTIONS (1)
  - DYSPEPSIA [None]
